FAERS Safety Report 4657887-7 (Version None)
Quarter: 2005Q2

REPORT INFORMATION
  Report Type: 
  Country: None (occurrence: None)
  Receive Date: 20050510
  Receipt Date: 20050317
  Transmission Date: 20051028
  Serious: Yes (Other)
  Sender: FDA-Public Use
  Company Number: PHEH2005US03271

PATIENT
  Sex: Female

DRUGS (1)
  1. EYESCRUB (NVO) [Suspect]
     Indication: BLEPHARITIS

REACTIONS (5)
  - CATARACT OPERATION [None]
  - DRUG INEFFECTIVE [None]
  - EYE DISORDER [None]
  - LACRIMATION INCREASED [None]
  - PHOTOPHOBIA [None]
